FAERS Safety Report 9914733 (Version 2)
Quarter: 2014Q2

REPORT INFORMATION
  Report Type: Spontaneous
  Country: US (occurrence: US)
  Receive Date: 20140220
  Receipt Date: 20140512
  Transmission Date: 20141212
  Serious: No
  Sender: FDA-Public Use
  Company Number: US-009507513-1402USA010057

PATIENT
  Age: 77 Year
  Sex: Female
  Weight: 86.17 kg

DRUGS (1)
  1. OXYTROL FOR WOMEN [Suspect]
     Indication: HYPERTONIC BLADDER
     Dosage: 1 DF, UNKNOWN
     Route: 062
     Dates: start: 201310, end: 201403

REACTIONS (4)
  - Pruritus [Unknown]
  - Erythema [Unknown]
  - Drug administered at inappropriate site [Unknown]
  - Product adhesion issue [Unknown]
